FAERS Safety Report 10388203 (Version 3)
Quarter: 2014Q3

REPORT INFORMATION
  Report Type: Spontaneous
  Country: CO (occurrence: CO)
  Receive Date: 20140815
  Receipt Date: 20140902
  Transmission Date: 20150326
  Serious: Yes (Other)
  Sender: FDA-Public Use
  Company Number: CO-GLAXOSMITHKLINE-A1085199A

PATIENT
  Age: 15 Year
  Sex: Female
  Weight: 61 kg

DRUGS (3)
  1. MEDROL [Concomitant]
     Active Substance: METHYLPREDNISOLONE
  2. SERETIDE [Suspect]
     Active Substance: FLUTICASONE FUROATE\SALMETEROL XINAFOATE
     Indication: ASTHMA
     Dosage: 1PUFF TWICE PER DAY
     Route: 055
     Dates: start: 20140728, end: 20140728
  3. AZITHROMYCIN [Concomitant]
     Active Substance: AZITHROMYCIN ANHYDROUS

REACTIONS (4)
  - Product quality issue [Unknown]
  - Palpitations [Recovered/Resolved]
  - Sinus tachycardia [Recovered/Resolved]
  - Drug administration error [Recovered/Resolved]

NARRATIVE: CASE EVENT DATE: 20140728
